FAERS Safety Report 12526523 (Version 6)
Quarter: 2019Q4

REPORT INFORMATION
  Report Type: Spontaneous
  Country: JP (occurrence: JP)
  Receive Date: 20160705
  Receipt Date: 20191002
  Transmission Date: 20200122
  Serious: Yes (Hospitalization)
  Sender: FDA-Public Use
  Company Number: JP-ACTELION-A-CH2012-67937

PATIENT
  Age: 13 Year
  Sex: Male

DRUGS (30)
  1. BRAZAVES [Suspect]
     Active Substance: MIGLUSTAT
     Indication: NIEMANN-PICK DISEASE
     Dosage: 100 MG, TID
     Route: 048
     Dates: start: 20120621, end: 20121022
  2. BRAZAVES [Suspect]
     Active Substance: MIGLUSTAT
     Dosage: 100 MG, BID
     Route: 048
     Dates: start: 20121023, end: 20140709
  3. DIAZEPAM. [Concomitant]
     Active Substance: DIAZEPAM
  4. PHENOBARBITAL. [Concomitant]
     Active Substance: PHENOBARBITAL
  5. FYCOMPA [Concomitant]
     Active Substance: PERAMPANEL
  6. E KEPPRA [Concomitant]
     Active Substance: LEVETIRACETAM
  7. TOPINA [Concomitant]
     Active Substance: TOPIRAMATE
  8. ALFACALCIDOL [Concomitant]
     Active Substance: ALFACALCIDOL
  9. MYSTAN [Concomitant]
     Active Substance: CLOBAZAM
  10. BRAZAVES [Suspect]
     Active Substance: MIGLUSTAT
     Dosage: 100 MG, TID
     Route: 048
     Dates: start: 20140710, end: 20150317
  11. BRAZAVES [Suspect]
     Active Substance: MIGLUSTAT
     Dosage: 200 MG, BID
     Route: 048
     Dates: start: 20150318, end: 20160304
  12. BRAZAVES [Suspect]
     Active Substance: MIGLUSTAT
     Dosage: 100 MG, BID
     Route: 048
     Dates: start: 20171226, end: 20180911
  13. ANAFRANIL [Concomitant]
     Active Substance: CLOMIPRAMINE HYDROCHLORIDE
  14. VIMPAT [Concomitant]
     Active Substance: LACOSAMIDE
  15. BRAZAVES [Suspect]
     Active Substance: MIGLUSTAT
     Dosage: 100 MG, BID
     Route: 048
     Dates: start: 20170703, end: 20170709
  16. BRAZAVES [Suspect]
     Active Substance: MIGLUSTAT
     Dosage: 100 MG, BID
     Route: 048
     Dates: start: 20190109, end: 20190129
  17. PIPERACILLIN AND TAZOBACTAM [Suspect]
     Active Substance: PIPERACILLIN SODIUM\TAZOBACTAM SODIUM
     Indication: BRONCHITIS
     Dosage: UNK
     Route: 042
     Dates: start: 20181105, end: 20181119
  18. BRAZAVES [Suspect]
     Active Substance: MIGLUSTAT
     Dosage: 100 MG, TID
     Route: 048
     Dates: start: 20160524, end: 20160605
  19. BRAZAVES [Suspect]
     Active Substance: MIGLUSTAT
     Dosage: 200 MG, BID
     Route: 048
     Dates: start: 20160606, end: 20170522
  20. BRAZAVES [Suspect]
     Active Substance: MIGLUSTAT
     Dosage: 100 MG, TID
     Route: 048
     Dates: start: 20180912, end: 20181126
  21. BRAZAVES [Suspect]
     Active Substance: MIGLUSTAT
     Dosage: 200 MG, BID
     Route: 048
     Dates: start: 20170710, end: 20171225
  22. BRAZAVES [Suspect]
     Active Substance: MIGLUSTAT
     Dosage: 100 MG, TID
     Route: 048
     Dates: start: 20190130
  23. DIAPP [Concomitant]
     Active Substance: DIAZEPAM
  24. WAKOBITAL [Concomitant]
  25. ALEVIATIN [Concomitant]
     Active Substance: PHENYTOIN SODIUM
  26. BRAZAVES [Suspect]
     Active Substance: MIGLUSTAT
     Dosage: 100 MG, QD
     Route: 048
     Dates: start: 20160510, end: 20160516
  27. BRAZAVES [Suspect]
     Active Substance: MIGLUSTAT
     Dosage: 100 MG, BID
     Route: 048
     Dates: start: 20160517, end: 20160523
  28. EXCEGRAN [Concomitant]
     Active Substance: ZONISAMIDE
  29. ONON [Concomitant]
     Active Substance: PRANLUKAST
     Dosage: UNK
  30. DEPAKENE [Concomitant]
     Active Substance: VALPROIC ACID

REACTIONS (5)
  - Bronchitis [Recovered/Resolved]
  - Malnutrition [Recovering/Resolving]
  - Constipation [Recovering/Resolving]
  - Diarrhoea [Recovering/Resolving]
  - Gastroenteritis [Recovering/Resolving]

NARRATIVE: CASE EVENT DATE: 20120622
